FAERS Safety Report 18570373 (Version 1)
Quarter: 2020Q4

REPORT INFORMATION
  Report Type: Report from Study
  Country: PL (occurrence: PL)
  Receive Date: 20201202
  Receipt Date: 20201202
  Transmission Date: 20210114
  Serious: Yes (Other)
  Sender: FDA-Public Use
  Company Number: PL-GW PHARMA-201604PLGW0231

PATIENT

DRUGS (6)
  1. EPIDIOLEX [Suspect]
     Active Substance: CANNABIDIOL
     Dosage: 15 MG/KG, 234 MILLIGRAM, QD
     Route: 048
     Dates: start: 20160420, end: 20160504
  2. DEPAKINE CHRONOSPHERE [Concomitant]
     Active Substance: VALPROIC ACID
     Dosage: 87.09 MILLIGRAM, BID
     Route: 048
     Dates: start: 20151021
  3. EPIDIOLEX [Suspect]
     Active Substance: CANNABIDIOL
     Dosage: 20 MG/KG, 312 MILLIGRAM, QD
     Route: 048
     Dates: start: 20160406, end: 20160419
  4. EPIDIOLEX [Suspect]
     Active Substance: CANNABIDIOL
     Indication: LENNOX-GASTAUT SYNDROME
     Dosage: 20 MG/KG, 390 MILLIGRAM, QD
     Route: 048
     Dates: start: 20160113, end: 20160405
  5. DEPAKINE CHRONOSPHERE [Concomitant]
     Active Substance: VALPROIC ACID
     Indication: LENNOX-GASTAUT SYNDROME
     Dosage: 199.98 MILLIGRAM, BID
     Route: 048
     Dates: start: 20151021
  6. XYZAL [Concomitant]
     Active Substance: LEVOCETIRIZINE DIHYDROCHLORIDE
     Indication: DERMATITIS ATOPIC
     Dosage: 1.25 MILLIGRAM, QD
     Route: 048
     Dates: start: 201506

REACTIONS (1)
  - Liver function test increased [Recovered/Resolved]

NARRATIVE: CASE EVENT DATE: 20160422
